FAERS Safety Report 8799582 (Version 2)
Quarter: 2013Q1

REPORT INFORMATION
  Report Type: Spontaneous
  Country: US (occurrence: US)
  Receive Date: 20120919
  Receipt Date: 20130326
  Transmission Date: 20140127
  Serious: Yes (Hospitalization, Other)
  Sender: FDA-Public Use
  Company Number: US-PFIZER INC-2012052268

PATIENT
  Sex: Male

DRUGS (4)
  1. CHANTIX [Suspect]
     Indication: SMOKING CESSATION THERAPY
     Dosage: 5MG AND 1MG STARTING PACK
     Dates: start: 20080731, end: 200808
  2. DEPAKOTE [Concomitant]
     Indication: ANXIETY
     Dosage: UNK
     Dates: start: 2002
  3. DEPAKOTE [Concomitant]
     Indication: DEPRESSION
  4. SIMVASTATIN [Concomitant]
     Indication: BLOOD CHOLESTEROL INCREASED
     Dosage: UNK
     Dates: start: 2007

REACTIONS (4)
  - Suicidal ideation [Recovered/Resolved]
  - Suicidal behaviour [Unknown]
  - Depression [Not Recovered/Not Resolved]
  - Aggression [Unknown]
